FAERS Safety Report 4664429-9 (Version None)
Quarter: 2005Q2

REPORT INFORMATION
  Report Type: 
  Country: None (occurrence: None)
  Receive Date: 20050516
  Receipt Date: 20050516
  Transmission Date: 20051028
  Serious: Yes (Other)
  Sender: FDA-Public Use
  Company Number: None

PATIENT
  Age: 62 Year
  Sex: Male
  Weight: 104 kg

DRUGS (1)
  1. FLUVASTATIN [Suspect]
     Indication: LIPIDS
     Dosage: 40 MG DAILY
     Dates: start: 20050218, end: 20050311

REACTIONS (2)
  - ASTHENIA [None]
  - MYALGIA [None]
